FAERS Safety Report 21375639 (Version 2)
Quarter: 2022Q4

REPORT INFORMATION
  Report Type: Report from Study
  Country: GR (occurrence: None)
  Receive Date: 20220926
  Receipt Date: 20221003
  Transmission Date: 20230112
  Serious: Yes (Hospitalization, Other)
  Sender: FDA-Public Use
  Company Number: GR-Merck Healthcare KGaA-9352412

PATIENT
  Sex: Female

DRUGS (1)
  1. REBIF [Suspect]
     Active Substance: INTERFERON BETA-1A
     Indication: Multiple sclerosis
     Route: 058
     Dates: start: 20160608

REACTIONS (2)
  - Uterine cervix stenosis [Recovering/Resolving]
  - Postmenopausal haemorrhage [Unknown]
